FAERS Safety Report 9413455 (Version 1)
Quarter: 2013Q3

REPORT INFORMATION
  Report Type: Spontaneous
  Country: US (occurrence: US)
  Receive Date: 20130722
  Receipt Date: 20130722
  Transmission Date: 20140515
  Serious: Yes (Other)
  Sender: FDA-Public Use
  Company Number: US-TEVA-419693USA

PATIENT
  Age: 70 Year
  Sex: Male

DRUGS (4)
  1. CARBIDOPA AND LEVODOPA [Suspect]
     Indication: PARKINSON^S DISEASE
     Dosage: CARBIDOPA-LEVODOPA 175/650MG DAILY
     Route: 065
  2. PRAMIPEXOLE [Suspect]
     Indication: PARKINSON^S DISEASE
     Dosage: 3.375MG SUBSEQUENTLY INCREASED TO 3.75MG/DAY
     Route: 065
  3. PRAMIPEXOLE [Suspect]
     Indication: PARKINSON^S DISEASE
     Dosage: 3.75MG/DAY SUBSEQUENTLY DECREASED TO 3MG/DAY BEFORE WITHDRAWAL
     Route: 065
  4. PRAMIPEXOLE [Suspect]
     Indication: PARKINSON^S DISEASE
     Dosage: 3MG/DAY
     Route: 065

REACTIONS (6)
  - Hypersexuality [Recovered/Resolved]
  - Drug abuse [Recovered/Resolved]
  - Anxiety [Recovered/Resolved]
  - Obsessive-compulsive disorder [Recovered/Resolved]
  - Aggression [Recovered/Resolved]
  - Impulse-control disorder [Recovered/Resolved]
